FAERS Safety Report 9809358 (Version 1)
Quarter: 2014Q1

REPORT INFORMATION
  Report Type: Spontaneous
  Country: US (occurrence: US)
  Receive Date: 20140110
  Receipt Date: 20140110
  Transmission Date: 20141002
  Serious: No
  Sender: FDA-Public Use
  Company Number: US-MALLINCKRODT-T201304627

PATIENT
  Age: 45 Year
  Sex: Female
  Weight: 43.99 kg

DRUGS (1)
  1. OPTIRAY [Suspect]
     Indication: COMPUTERISED TOMOGRAM ABDOMEN
     Dosage: 92 ML, SINGLE
     Route: 042
     Dates: start: 20131016, end: 20131016

REACTIONS (1)
  - Anaphylactoid reaction [Recovering/Resolving]
